FAERS Safety Report 9858609 (Version 1)
Quarter: 2014Q1

REPORT INFORMATION
  Report Type: Spontaneous
  Country: US (occurrence: None)
  Receive Date: 20140130
  Receipt Date: 20140130
  Transmission Date: 20141002
  Serious: Yes (Death)
  Sender: FDA-Public Use
  Company Number: None

PATIENT
  Age: 67 Year
  Sex: Male
  Weight: 98 kg

DRUGS (5)
  1. PRADAXA [Suspect]
     Indication: ATRIAL FIBRILLATION
     Dosage: 1 PILL BID ORAL
     Route: 048
  2. FLECAINIDE [Concomitant]
  3. METOPROLOL SUCCINATE [Concomitant]
  4. NASACORT [Concomitant]
  5. SINGULAIR [Concomitant]

REACTIONS (4)
  - Atrial fibrillation [None]
  - Cerebrovascular accident [None]
  - Brain herniation [None]
  - Post procedural complication [None]
